FAERS Safety Report 26148447 (Version 1)
Quarter: 2025Q4

REPORT INFORMATION
  Report Type: Spontaneous
  Country: GB (occurrence: GB)
  Receive Date: 20251212
  Receipt Date: 20251212
  Transmission Date: 20260118
  Serious: Yes (Other)
  Sender: BRISTOL-MYERS SQUIBB COMPANY
  Company Number: GB-CELGENE-GBR-20180204467

PATIENT
  Age: 72 Year
  Sex: Male

DRUGS (8)
  1. LENALIDOMIDE [Suspect]
     Active Substance: LENALIDOMIDE
     Indication: Product used for unknown indication
     Dosage: FREQUENCY TEXT: NOT PROVIDED
     Route: 048
  2. LENALIDOMIDE [Suspect]
     Active Substance: LENALIDOMIDE
     Dosage: FREQUENCY TEXT: NOT PROVIDED?DOSE REDUCED
     Route: 048
  3. DEXAMETHASONE [Suspect]
     Active Substance: DEXAMETHASONE
     Indication: Product used for unknown indication
     Dosage: FREQUENCY TEXT: NOT PROVIDED
  4. DEXAMETHASONE [Suspect]
     Active Substance: DEXAMETHASONE
     Dosage: FREQUENCY TEXT: NOT PROVIDED?DOSE REDUCED
  5. IXAZOMIB [Suspect]
     Active Substance: IXAZOMIB
     Indication: Plasma cell myeloma
     Dosage: FREQUENCY TEXT: NOT PROVIDED
     Route: 048
  6. IXAZOMIB [Suspect]
     Active Substance: IXAZOMIB
     Dosage: FREQUENCY TEXT: NOT PROVIDED
     Route: 048
  7. IXAZOMIB [Suspect]
     Active Substance: IXAZOMIB
     Dosage: FREQUENCY TEXT: NOT PROVIDED?DOSE REDUCED
     Route: 048
  8. WARFARIN [Concomitant]
     Active Substance: WARFARIN
     Indication: Atrial fibrillation

REACTIONS (22)
  - Confusional state [Unknown]
  - Incontinence [Unknown]
  - Hyperkalaemia [Unknown]
  - Hypernatraemia [Unknown]
  - Rales [Unknown]
  - Haemoglobin abnormal [Unknown]
  - Neutropenia [Unknown]
  - Thrombocytopenia [Not Recovered/Not Resolved]
  - Rash [Unknown]
  - Fatigue [Unknown]
  - Lethargy [Unknown]
  - Peripheral swelling [Unknown]
  - Contusion [Unknown]
  - Epistaxis [Unknown]
  - Influenza [Recovering/Resolving]
  - Nasopharyngitis [Recovering/Resolving]
  - Diarrhoea [Unknown]
  - Light chain analysis increased [Unknown]
  - Productive cough [Unknown]
  - Dyspnoea exertional [Unknown]
  - Pain in extremity [Unknown]
  - Urinary tract infection [Unknown]

NARRATIVE: CASE EVENT DATE: 20171120
